FAERS Safety Report 21786942 (Version 1)
Quarter: 2022Q4

REPORT INFORMATION
  Report Type: Spontaneous
  Country: US (occurrence: US)
  Receive Date: 20221228
  Receipt Date: 20221228
  Transmission Date: 20230113
  Serious: Yes (Hospitalization)
  Sender: FDA-Public Use
  Company Number: US-SA-2022SA521189

PATIENT
  Age: 19 Year
  Sex: Male

DRUGS (1)
  1. ALDURAZYME [Suspect]
     Active Substance: LARONIDASE
     Dosage: 29 MG, QW
     Route: 041
     Dates: end: 20221126

REACTIONS (1)
  - Illness [Unknown]

NARRATIVE: CASE EVENT DATE: 20220101
